FAERS Safety Report 8332605-X (Version None)
Quarter: 2012Q1

REPORT INFORMATION
  Report Type: 
  Country: None (occurrence: None)
  Receive Date: 20120315
  Receipt Date: 20110601
  Transmission Date: 20120608
  Serious: No
  Sender: FDA-Public Use
  Company Number: PHHY2011US47854

PATIENT
  Age: 50 Year
  Sex: Female
  Weight: 56.7 kg

DRUGS (13)
  1. CALCIUM [Concomitant]
  2. MULTIVITAMINS (ASCORBIC ACID, ERGOCALCIFEROL, FOLIC ACID, NICOTINAMIDE [Concomitant]
  3. NITROFURANTOIN [Concomitant]
  4. VITAMIN E [Concomitant]
  5. GABAPENTIN [Concomitant]
  6. COQ10 (UBIDECARENONE) [Concomitant]
  7. MAGNESIUM [Concomitant]
  8. VITAMIN D [Concomitant]
  9. FLAXSEED OIL (LINUM USITATISSIMUM SEED OIL) [Concomitant]
  10. ACIDOPHILUS (LACTOBACILLUS ACIDOPHILUS) [Concomitant]
  11. GILENYA [Suspect]
     Dosage: 0.5 MG, QD
  12. CYMBALTA [Concomitant]
  13. LOVAZA [Concomitant]

REACTIONS (1)
  - ABDOMINAL PAIN [None]
